FAERS Safety Report 8538706 (Version 3)
Quarter: 2012Q4

REPORT INFORMATION
  Report Type: Report from Study
  Country: CA (occurrence: CA)
  Receive Date: 20120501
  Receipt Date: 20120907
  Transmission Date: 20130627
  Serious: Yes (Other)
  Sender: FDA-Public Use
  Company Number: CA-ROCHE-1062134

PATIENT
  Age: 61 Year
  Sex: Female
  Weight: 68.1 kg

DRUGS (10)
  1. MABTHERA [Suspect]
     Indication: RHEUMATOID ARTHRITIS
     Route: 042
     Dates: start: 20101104, end: 20110816
  2. ARAVA [Concomitant]
  3. PREDNISOLONE [Concomitant]
  4. SULFAZINE [Concomitant]
  5. PLAQUENIL [Concomitant]
  6. AVAPRO [Concomitant]
  7. METHOTREXATE [Concomitant]
  8. DIPHENHYDRAMINE HCL [Concomitant]
     Indication: PREMEDICATION
     Route: 048
     Dates: start: 20110816, end: 20110816
  9. ACETAMINOPHEN [Concomitant]
     Indication: PREMEDICATION
     Route: 048
     Dates: start: 20110816, end: 20110816
  10. METHYLPREDNISOLONE [Concomitant]
     Indication: PREMEDICATION
     Route: 042
     Dates: start: 20110816, end: 20110816

REACTIONS (6)
  - Spinal fracture [Not Recovered/Not Resolved]
  - Arthralgia [Recovered/Resolved]
  - Muscle spasms [Recovered/Resolved]
  - Sciatica [Unknown]
  - Localised infection [Unknown]
  - Wound [Unknown]
